FAERS Safety Report 14350255 (Version 1)
Quarter: 2018Q1

REPORT INFORMATION
  Report Type: Report from Study
  Country: AT (occurrence: AT)
  Receive Date: 20180104
  Receipt Date: 20180104
  Transmission Date: 20180509
  Serious: Yes (Hospitalization)
  Sender: FDA-Public Use
  Company Number: AT-PFIZER INC-2018001035

PATIENT
  Age: 73 Year
  Sex: Male
  Weight: 66 kg

DRUGS (6)
  1. CELLSEPT [Concomitant]
     Active Substance: MYCOPHENOLATE MOFETIL
     Indication: HEART TRANSPLANT
     Dosage: 500 MG, 1X/DAY
     Dates: start: 200903
  2. PROCORALAN [Concomitant]
     Active Substance: IVABRADINE
     Indication: HEART TRANSPLANT
     Dosage: 7.5 MG, 1X/DAY
  3. GEMCITABINE HYDROCHLORIDE. [Suspect]
     Active Substance: GEMCITABINE HYDROCHLORIDE
     Indication: PANCREATIC CARCINOMA
     Dosage: 1787 MG/M2, UNK
     Dates: start: 20170529
  4. PROGRAF [Concomitant]
     Active Substance: TACROLIMUS\TACROLIMUS ANHYDROUS
     Indication: HEART TRANSPLANT
     Dosage: 3 MG, 1X/DAY
     Dates: start: 200903
  5. LASIX [Concomitant]
     Active Substance: FUROSEMIDE
     Indication: HEART TRANSPLANT
     Dosage: 1 MG, 1X/DAY
  6. ABRAXANE [Suspect]
     Active Substance: PACLITAXEL
     Indication: PANCREATIC CARCINOMA
     Dosage: 223 MG/M2, UNK
     Route: 041
     Dates: start: 20170529

REACTIONS (15)
  - Weight decreased [Recovered/Resolved]
  - Orthopnoea [Recovered/Resolved]
  - Decreased appetite [Not Recovered/Not Resolved]
  - Anaemia [Not Recovered/Not Resolved]
  - Cardiac failure [Recovered/Resolved]
  - Oedema peripheral [Recovered/Resolved]
  - Peripheral swelling [Recovered/Resolved]
  - Hypotension [Recovered/Resolved]
  - Neutropenia [Recovered/Resolved]
  - Tonsillitis [Recovered/Resolved]
  - Thrombocytopenia [Recovered/Resolved]
  - Neoplasm progression [Unknown]
  - Polyneuropathy [Recovered/Resolved]
  - Dysphonia [Recovered/Resolved]
  - Diarrhoea [Recovered/Resolved]

NARRATIVE: CASE EVENT DATE: 20170529
